FAERS Safety Report 5682234-1 (Version None)
Quarter: 2008Q1

REPORT INFORMATION
  Report Type: 
  Country: None (occurrence: None)
  Receive Date: 20080327
  Receipt Date: 20080319
  Transmission Date: 20080703
  Serious: Yes (Hospitalization)
  Sender: FDA-Public Use
  Company Number: PHBS2008US03484

PATIENT
  Age: 70 Year
  Sex: Female

DRUGS (9)
  1. METOPROLOL TARTRATE [Suspect]
  2. MYCOPHENOLATE MOFETIL [Suspect]
  3. AMLODIPINE [Suspect]
  4. TACROLIMUS [Concomitant]
  5. CLONIDINE [Concomitant]
  6. ASPIRIN [Concomitant]
  7. LANSOPRAZOLE [Concomitant]
  8. ATORVASTATIN CALCIUM [Concomitant]
  9. INSULIN [Concomitant]

REACTIONS (16)
  - ABDOMINAL HERNIA REPAIR [None]
  - ABDOMINAL PAIN [None]
  - ASCITES [None]
  - BLOOD GLUCOSE INCREASED [None]
  - BLOOD UREA DECREASED [None]
  - DIARRHOEA [None]
  - GASTROENTERITIS [None]
  - HEPATIC CIRRHOSIS [None]
  - HYDRONEPHROSIS [None]
  - MASS [None]
  - MEAN CELL VOLUME DECREASED [None]
  - NEPHRECTOMY [None]
  - NEPHROSTOMY TUBE PLACEMENT [None]
  - UMBILICAL HERNIA [None]
  - URETHRAL STENOSIS [None]
  - URINE OUTPUT DECREASED [None]
